FAERS Safety Report 9393408 (Version 1)
Quarter: 2013Q3

REPORT INFORMATION
  Report Type: Spontaneous
  Country: US (occurrence: US)
  Receive Date: 20130710
  Receipt Date: 20130710
  Transmission Date: 20140515
  Serious: Yes (Other)
  Sender: FDA-Public Use
  Company Number: US-BAYER-2013-083127

PATIENT
  Age: 60 Year
  Sex: Female
  Weight: 77.1 kg

DRUGS (7)
  1. BETASERON [Suspect]
     Dosage: 0.3 MG, QOD
     Route: 058
  2. PROVIGIL [Concomitant]
  3. LEXAPRO [Concomitant]
  4. VITAMIN D [Concomitant]
  5. VITAMIN C [Concomitant]
  6. GARLIC [Concomitant]
  7. SIMVASTATIN [Concomitant]

REACTIONS (5)
  - Diverticulitis [Unknown]
  - Influenza like illness [Unknown]
  - Pain [Unknown]
  - Chills [Unknown]
  - Injection site reaction [Unknown]
